FAERS Safety Report 20619373 (Version 2)
Quarter: 2024Q2

REPORT INFORMATION
  Report Type: Spontaneous
  Country: DE (occurrence: DE)
  Receive Date: 20220322
  Receipt Date: 20240603
  Transmission Date: 20240716
  Serious: Yes (Hospitalization)
  Sender: FDA-Public Use
  Company Number: DE-ROCHE-3042592

PATIENT
  Age: 78 Year
  Sex: Female

DRUGS (4)
  1. BEVACIZUMAB [Suspect]
     Active Substance: BEVACIZUMAB
     Indication: Hepatocellular carcinoma
     Dosage: 15 MILLIGRAM/KILOGRAM (9 CYCLES IN COMBINATION WITH ATEZOLIZUMAB)
     Route: 065
     Dates: start: 202102, end: 202109
  2. BEVACIZUMAB [Suspect]
     Active Substance: BEVACIZUMAB
     Dosage: 15 MILLIGRAM/KILOGRAM (IN COMBINATION WITH ATEZOLIZUMAB)
     Route: 065
     Dates: start: 202111, end: 202202
  3. ATEZOLIZUMAB [Suspect]
     Active Substance: ATEZOLIZUMAB
     Indication: Hepatocellular carcinoma
     Dosage: 1200 MILLIGRAM (9 CYCLES IN COMBINATION WITH BEVACIZUMAB)
     Route: 041
     Dates: start: 202102, end: 202109
  4. ATEZOLIZUMAB [Suspect]
     Active Substance: ATEZOLIZUMAB
     Dosage: 1200 MILLIGRAM (IN COMBINATION WITH BEVACIZUMAB)
     Route: 042
     Dates: start: 202111, end: 202202

REACTIONS (5)
  - Cystitis noninfective [Unknown]
  - Immune-mediated myasthenia gravis [Unknown]
  - Deafness [Unknown]
  - Muscular weakness [Unknown]
  - Off label use [Unknown]

NARRATIVE: CASE EVENT DATE: 20211001
